FAERS Safety Report 9014159 (Version 1)
Quarter: 2013Q1

REPORT INFORMATION
  Report Type: Spontaneous
  Country: JP (occurrence: JP)
  Receive Date: 20130115
  Receipt Date: 20130115
  Transmission Date: 20140127
  Serious: Yes (Other)
  Sender: FDA-Public Use
  Company Number: PHHY2011JP63277

PATIENT
  Age: 31 Year
  Sex: Male

DRUGS (7)
  1. ESANBUTOL [Suspect]
     Indication: PULMONARY TUBERCULOSIS
     Dosage: UNK UKN, UNK
  2. ISONIAZID [Suspect]
     Indication: PULMONARY TUBERCULOSIS
  3. ALLOPURINOL [Suspect]
     Indication: HYPERURICAEMIA
  4. PYRAZINAMIDE [Suspect]
     Indication: PULMONARY TUBERCULOSIS
  5. LEVOFLOXACIN [Suspect]
     Indication: PULMONARY TUBERCULOSIS
  6. ETHIONAMIDE [Suspect]
     Indication: PULMONARY TUBERCULOSIS
  7. RIFAMPICIN [Suspect]
     Indication: PULMONARY TUBERCULOSIS
     Dosage: UNK UKN, UNK

REACTIONS (8)
  - Drug reaction with eosinophilia and systemic symptoms [Recovering/Resolving]
  - Pyrexia [Recovering/Resolving]
  - Rash maculo-papular [Recovering/Resolving]
  - Hepatic function abnormal [Recovering/Resolving]
  - Lymphadenopathy [Recovering/Resolving]
  - Leukocytosis [Recovering/Resolving]
  - Eosinophilia [Recovering/Resolving]
  - Pruritus [Recovering/Resolving]
